FAERS Safety Report 6658099-8 (Version None)
Quarter: 2010Q1

REPORT INFORMATION
  Report Type: 
  Country: None (occurrence: None)
  Receive Date: 20100330
  Receipt Date: 20100322
  Transmission Date: 20100710
  Serious: Yes (Other)
  Sender: FDA-Public Use
  Company Number: US-ELI_LILLY_AND_COMPANY-US201003000141

PATIENT
  Age: 55 Year
  Sex: Male
  Weight: 119.27 kg

DRUGS (21)
  1. BYETTA [Suspect]
     Indication: TYPE 2 DIABETES MELLITUS
     Dosage: 5 UG, 2/D
     Route: 058
     Dates: start: 20060101, end: 20060101
  2. BYETTA [Suspect]
     Dosage: 10 UG, 2/D
     Route: 058
     Dates: start: 20060101, end: 20100101
  3. CRESTOR [Concomitant]
  4. TRICOR [Concomitant]
  5. ZETIA [Concomitant]
  6. ALTACE [Concomitant]
  7. AMMONIUM LACTATE [Concomitant]
  8. BENICAR [Concomitant]
  9. COREG [Concomitant]
  10. FLOMAX [Concomitant]
  11. FUROSEMIDE [Concomitant]
  12. GLIPIZIDE [Concomitant]
  13. HYDROCHLOROTHIAZIDE [Concomitant]
  14. LANTUS [Concomitant]
  15. METFORMIN (GLUCOPHAGE) [Concomitant]
  16. NORVASC [Concomitant]
  17. PROTONIX [Concomitant]
  18. SERTRALINE HCL [Concomitant]
  19. VITAMIN D [Concomitant]
  20. DIURETICS [Concomitant]
  21. ACE INHIBITOR NOS [Concomitant]

REACTIONS (3)
  - OFF LABEL USE [None]
  - PANCREATITIS [None]
  - WEIGHT DECREASED [None]
